FAERS Safety Report 13837800 (Version 1)
Quarter: 2017Q3

REPORT INFORMATION
  Report Type: Spontaneous
  Country: US (occurrence: US)
  Receive Date: 20170806
  Receipt Date: 20170806
  Transmission Date: 20171127
  Serious: Yes (Hospitalization, Other)
  Sender: FDA-Public Use
  Company Number: US-CELGENEUS-USA-20170800195

PATIENT
  Age: 77 Year
  Sex: Female
  Weight: 72.64 kg

DRUGS (1)
  1. REVLIMID [Suspect]
     Active Substance: LENALIDOMIDE
     Indication: PLASMA CELL MYELOMA
     Dosage: 10 MILLIGRAM
     Route: 048
     Dates: start: 201608

REACTIONS (4)
  - Pneumonia [Unknown]
  - Hypotension [Unknown]
  - Haemoglobin decreased [Unknown]
  - Body temperature increased [Unknown]

NARRATIVE: CASE EVENT DATE: 201706
